FAERS Safety Report 20946497 (Version 1)
Quarter: 2022Q2

REPORT INFORMATION
  Report Type: Spontaneous
  Country: US (occurrence: None)
  Receive Date: 20220610
  Receipt Date: 20220610
  Transmission Date: 20220721
  Serious: Yes (Hospitalization)
  Sender: FDA-Public Use
  Company Number: 2022A209846

PATIENT
  Sex: Male
  Weight: 102.1 kg

DRUGS (3)
  1. FARXIGA [Suspect]
     Active Substance: DAPAGLIFLOZIN PROPANEDIOL
     Indication: Type 1 diabetes mellitus
     Route: 048
     Dates: end: 2022
  2. OZEMPIC [Concomitant]
     Active Substance: SEMAGLUTIDE
     Route: 065
  3. METFORMIN [Concomitant]
     Active Substance: METFORMIN HYDROCHLORIDE
     Route: 065

REACTIONS (3)
  - Diabetic ketoacidosis [Unknown]
  - Blood test abnormal [Recovered/Resolved]
  - Off label use [Unknown]
